FAERS Safety Report 8235775-7 (Version None)
Quarter: 2012Q1

REPORT INFORMATION
  Report Type: 
  Country: None (occurrence: None)
  Receive Date: 20120326
  Receipt Date: 20120319
  Transmission Date: 20120608
  Serious: Yes (Hospitalization)
  Sender: FDA-Public Use
  Company Number: FR-B.I. PHARMACEUTICALS,INC./RIDGEFIELD-2012-FF-00327FF

PATIENT
  Sex: Male
  Weight: 79 kg

DRUGS (2)
  1. PRADAXA [Suspect]
     Indication: HIP ARTHROPLASTY
     Dosage: 75 MG
     Route: 048
     Dates: start: 20111130, end: 20111130
  2. PRADAXA [Suspect]
     Dosage: 150 MG
     Route: 048
     Dates: start: 20111201, end: 20120101

REACTIONS (1)
  - INGUINAL HERNIA [None]
